FAERS Safety Report 6440829-1 (Version None)
Quarter: 2009Q4

REPORT INFORMATION
  Report Type: 
  Country: None (occurrence: None)
  Receive Date: 20091116
  Receipt Date: 20091109
  Transmission Date: 20100525
  Serious: Yes (Hospitalization, Other)
  Sender: FDA-Public Use
  Company Number: IT-ROXANE LABORATORIES, INC.-2009-RO-01142RO

PATIENT
  Age: 73 Year
  Sex: Male

DRUGS (2)
  1. LITHIUM CARBONATE [Suspect]
     Indication: BIPOLAR II DISORDER
     Dosage: 600 MG
  2. VENLAFAXINE [Suspect]
     Indication: BIPOLAR II DISORDER
     Dosage: 75 MG

REACTIONS (2)
  - AGITATION [None]
  - PYREXIA [None]
